FAERS Safety Report 7756814-3 (Version None)
Quarter: 2011Q3

REPORT INFORMATION
  Report Type: 
  Country: None (occurrence: None)
  Receive Date: 20110916
  Receipt Date: 20110907
  Transmission Date: 20111222
  Serious: Yes (Hospitalization, Other)
  Sender: FDA-Public Use
  Company Number: DK-JNJFOC-20110207727

PATIENT
  Sex: Female
  Weight: 82 kg

DRUGS (4)
  1. METHOTREXATE [Concomitant]
     Indication: RHEUMATOID ARTHRITIS
     Route: 048
     Dates: start: 20071126, end: 20100729
  2. ENBREL [Suspect]
     Indication: RHEUMATOID ARTHRITIS
     Dates: start: 20080317, end: 20080804
  3. REMICADE [Suspect]
     Indication: RHEUMATOID ARTHRITIS
     Dosage: AT WEEK 0, 2, 6, AND 8
     Route: 042
     Dates: start: 20071107, end: 20080317
  4. ORENCIA [Suspect]
     Indication: RHEUMATOID ARTHRITIS
     Dates: start: 20080805, end: 20101220

REACTIONS (2)
  - BREAST CANCER STAGE IV [None]
  - METASTASES TO SPINE [None]
